FAERS Safety Report 8817781 (Version 4)
Quarter: 2012Q4

REPORT INFORMATION
  Report Type: 
  Country: GB (occurrence: GB)
  Receive Date: 20121001
  Receipt Date: 20121205
  Transmission Date: 20130627
  Serious: Yes (Hospitalization)
  Sender: FDA-Public Use
  Company Number: PHFR2012GB005147

PATIENT
  Age: 21 Year
  Sex: Female

DRUGS (6)
  1. CLOZARIL [Suspect]
     Indication: SCHIZOPHRENIA
     Route: 048
     Dates: start: 20110923
  2. CLOZARIL [Suspect]
     Dosage: 300 UKN, UNK
     Route: 048
  3. CLOZARIL [Suspect]
     Dosage: UNK UKN, UNK
     Dates: start: 20121108
  4. FLUOXETINE [Concomitant]
     Dosage: 40 mg, UNK
     Route: 048
  5. LAMOTRIGINE [Concomitant]
     Dosage: 50 mg
     Route: 048
  6. ANTIPSYCHOTICS [Concomitant]
     Dosage: UNK UKN, UNK
     Route: 030

REACTIONS (4)
  - Malabsorption [Unknown]
  - Appendicitis perforated [Recovering/Resolving]
  - Neutrophil count increased [Recovered/Resolved]
  - White blood cell count increased [Recovered/Resolved]
